FAERS Safety Report 18507048 (Version 2)
Quarter: 2021Q2

REPORT INFORMATION
  Report Type: Report from Study
  Country: FR (occurrence: FR)
  Receive Date: 20201116
  Receipt Date: 20210520
  Transmission Date: 20210717
  Serious: No
  Sender: FDA-Public Use
  Company Number: FR-JNJFOC-20201108264

PATIENT
  Age: 50 Year
  Sex: Male
  Weight: 86 kg

DRUGS (1)
  1. SPRAVATO [Suspect]
     Active Substance: ESKETAMINE
     Indication: DEPRESSION

REACTIONS (4)
  - Sedation [Recovered/Resolved]
  - Limb discomfort [Recovered/Resolved]
  - Vision blurred [Recovered/Resolved]
  - Dissociative disorder [Recovered/Resolved]

NARRATIVE: CASE EVENT DATE: 20201013
